FAERS Safety Report 11754319 (Version 1)
Quarter: 2015Q4

REPORT INFORMATION
  Report Type: Spontaneous
  Country: US (occurrence: None)
  Receive Date: 20151118
  Receipt Date: 20151118
  Transmission Date: 20160304
  Serious: Yes (Other)
  Sender: FDA-Public Use
  Company Number: None

PATIENT
  Age: 73 Year
  Sex: Female
  Weight: 56.7 kg

DRUGS (12)
  1. CIPROFLOXACIN HCL 250 MG [Suspect]
     Active Substance: CIPROFLOXACIN
     Indication: ESCHERICHIA INFECTION
     Route: 048
     Dates: start: 20131220, end: 201410
  2. CIPROFLOXACIN HCL 250 MG [Suspect]
     Active Substance: CIPROFLOXACIN
     Indication: SKIN INFECTION
     Route: 048
     Dates: start: 20131220, end: 201410
  3. DILTIAZEM 24HR ER [Concomitant]
  4. CEPHALEXIN 500MG [Suspect]
     Active Substance: CEPHALEXIN
  5. ADVAIR HFA [Concomitant]
     Active Substance: FLUTICASONE PROPIONATE\SALMETEROL XINAFOATE
  6. DORYX [Suspect]
     Active Substance: DOXYCYCLINE HYCLATE
  7. NITROFURAN 100 MG [Suspect]
     Active Substance: NITROFURANTOIN
  8. QUINAPRIL [Concomitant]
     Active Substance: QUINAPRIL\QUINAPRIL HYDROCHLORIDE
  9. CIPROFLOXACIN HCL 250 MG [Suspect]
     Active Substance: CIPROFLOXACIN
     Indication: URINARY TRACT INFECTION
     Route: 048
     Dates: start: 20131220, end: 201410
  10. LEVOFLOXACIN 500MG [Suspect]
     Active Substance: LEVOFLOXACIN
  11. VENTOLIN HFA [Concomitant]
     Active Substance: ALBUTEROL SULFATE
  12. CLONIDINE HCL [Concomitant]
     Active Substance: CLONIDINE HYDROCHLORIDE

REACTIONS (12)
  - Memory impairment [None]
  - Restless legs syndrome [None]
  - Headache [None]
  - Pain in extremity [None]
  - Asthenia [None]
  - Blood pressure measurement [None]
  - Depression [None]
  - Weight decreased [None]
  - Rash [None]
  - Asthma [None]
  - Gastric disorder [None]
  - Infection [None]

NARRATIVE: CASE EVENT DATE: 20140417
